APPROVED DRUG PRODUCT: VALACYCLOVIR HYDROCHLORIDE
Active Ingredient: VALACYCLOVIR HYDROCHLORIDE
Strength: EQ 500MG BASE
Dosage Form/Route: TABLET;ORAL
Application: A090500 | Product #001
Applicant: APOTEX INC
Approved: Apr 4, 2014 | RLD: No | RS: No | Type: DISCN